FAERS Safety Report 5401644-0 (Version None)
Quarter: 2007Q3

REPORT INFORMATION
  Report Type: 
  Country: None (occurrence: None)
  Receive Date: 20070731
  Receipt Date: 20070719
  Transmission Date: 20080115
  Serious: Yes (Death, Hospitalization)
  Sender: FDA-Public Use
  Company Number: JP-PFIZER INC-2007049723

PATIENT
  Sex: Female
  Weight: 46 kg

DRUGS (9)
  1. DALACIN S [Suspect]
     Indication: PNEUMONIA
     Dosage: DAILY DOSE:1200MG
     Route: 042
     Dates: start: 20070615, end: 20070615
  2. PASIL [Suspect]
     Indication: PNEUMONIA
     Dosage: DAILY DOSE:1000MG
     Route: 042
     Dates: start: 20070615, end: 20070615
  3. CARBENIN [Concomitant]
     Route: 042
     Dates: start: 20070606, end: 20070614
  4. ISEPACIN [Concomitant]
     Route: 030
     Dates: start: 20070606, end: 20070614
  5. BUFORMIN HYDROCHLORIDE [Concomitant]
     Indication: DIABETES MELLITUS
     Route: 048
     Dates: start: 20011218, end: 20070615
  6. LANIRAPID [Concomitant]
     Indication: CARDIAC FAILURE
     Route: 048
     Dates: start: 20011218, end: 20070615
  7. WARFARIN SODIUM [Concomitant]
     Indication: ATRIAL FIBRILLATION
     Route: 048
     Dates: start: 20011218, end: 20070615
  8. LASIX [Concomitant]
     Indication: CARDIAC FAILURE
     Route: 048
     Dates: start: 20011218, end: 20070615
  9. DIOVAN [Concomitant]
     Indication: CEREBRAL ARTERY EMBOLISM
     Route: 048
     Dates: start: 20011218, end: 20070615

REACTIONS (1)
  - CARDIAC FAILURE ACUTE [None]
